FAERS Safety Report 13105772 (Version 1)
Quarter: 2017Q1

REPORT INFORMATION
  Report Type: Spontaneous
  Country: US (occurrence: US)
  Receive Date: 20170111
  Receipt Date: 20170111
  Transmission Date: 20170428
  Serious: No
  Sender: FDA-Public Use
  Company Number: US-ALKERMES INC.-ALK-2016-002317

PATIENT
  Age: 53 Year
  Sex: Female
  Weight: 99.32 kg

DRUGS (2)
  1. OTHER THERAPEUTIC PRODUCTS [Concomitant]
     Active Substance: UNSPECIFIED INGREDIENT
     Indication: SCHIZOAFFECTIVE DISORDER
     Dosage: UNK
     Dates: start: 20160812
  2. ARISTADA [Suspect]
     Active Substance: ARIPIPRAZOLE LAUROXIL
     Indication: SCHIZOAFFECTIVE DISORDER
     Dosage: 882 MG, QMO
     Route: 030
     Dates: start: 20160713

REACTIONS (1)
  - Off label use [Not Recovered/Not Resolved]

NARRATIVE: CASE EVENT DATE: 20160713
